FAERS Safety Report 7394238-1 (Version None)
Quarter: 2011Q2

REPORT INFORMATION
  Report Type: 
  Country: None (occurrence: None)
  Receive Date: 20110405
  Receipt Date: 20110324
  Transmission Date: 20111010
  Serious: Yes (Hospitalization)
  Sender: FDA-Public Use
  Company Number: FR-SANOFI-AVENTIS-2011SA018873

PATIENT
  Age: 68 Year
  Sex: Male

DRUGS (10)
  1. CALCIUM FOLINATE [Suspect]
     Route: 042
     Dates: start: 20101223, end: 20101223
  2. FLUOROURACIL [Suspect]
     Route: 040
     Dates: start: 20100611, end: 20100611
  3. AVASTIN [Suspect]
     Route: 042
     Dates: start: 20100611, end: 20100611
  4. ZOPHREN [Concomitant]
  5. METHYLPREDNISOLONE [Concomitant]
  6. CALCIUM FOLINATE [Suspect]
     Route: 042
     Dates: start: 20100611, end: 20100611
  7. OXALIPLATIN [Suspect]
     Route: 042
     Dates: start: 20101223, end: 20101223
  8. OXALIPLATIN [Suspect]
     Route: 042
     Dates: start: 20100611, end: 20100611
  9. AVASTIN [Suspect]
     Route: 042
     Dates: start: 20101223, end: 20101223
  10. FLUOROURACIL [Suspect]
     Route: 040
     Dates: start: 20101223, end: 20101223

REACTIONS (6)
  - OXYGEN SATURATION DECREASED [None]
  - PYREXIA [None]
  - HYPERTENSION [None]
  - CHILLS [None]
  - TACHYCARDIA [None]
  - THROMBOCYTOPENIA [None]
